FAERS Safety Report 13433266 (Version 1)
Quarter: 2017Q2

REPORT INFORMATION
  Report Type: Spontaneous
  Country: TH (occurrence: TH)
  Receive Date: 20170412
  Receipt Date: 20170412
  Transmission Date: 20170830
  Serious: Yes (Death)
  Sender: FDA-Public Use
  Company Number: TH-IMPAX LABORATORIES, INC-2017-IPXL-00903

PATIENT
  Sex: Female

DRUGS (4)
  1. FLUOROURACIL. [Suspect]
     Active Substance: FLUOROURACIL
     Dosage: 600 MG/M2, IN 22 H ON DAY 1-2 (INTRAVENOUS DRIP)
     Route: 042
  2. OXALIPLATIN. [Suspect]
     Active Substance: OXALIPLATIN
     Indication: CERVIX CARCINOMA
     Dosage: 85 MG/M2, ON DAY 1
     Route: 065
  3. LEUCOVORIN CALCIUM. [Suspect]
     Active Substance: LEUCOVORIN CALCIUM
     Indication: CERVIX CARCINOMA
     Dosage: 200 MG/M2, ON DAY 1-2 (INTRAVENOUS PUSH)
     Route: 042
  4. FLUOROURACIL. [Suspect]
     Active Substance: FLUOROURACIL
     Indication: CERVIX CARCINOMA
     Dosage: 400 MG/M2, ON DAY 1-2 (INTRAVENOUS PUSH)
     Route: 042

REACTIONS (1)
  - Unevaluable event [Fatal]
